FAERS Safety Report 10674777 (Version 1)
Quarter: 2014Q4

REPORT INFORMATION
  Report Type: Report from Study
  Country: CZ (occurrence: CZ)
  Receive Date: 20141224
  Receipt Date: 20141224
  Transmission Date: 20150529
  Serious: Yes (Hospitalization)
  Sender: FDA-Public Use
  Company Number: CZ-JNJFOC-20141215243

PATIENT
  Age: 33 Year
  Sex: Male

DRUGS (3)
  1. VESSEL DUE F [Concomitant]
     Active Substance: SULODEXIDE
     Route: 065
  2. DETRALEX [Concomitant]
     Active Substance: DIOSMIN\HESPERIDIN
     Route: 065
  3. SIMPONI [Suspect]
     Active Substance: GOLIMUMAB
     Indication: ANKYLOSING SPONDYLITIS
     Route: 058
     Dates: start: 20131202

REACTIONS (1)
  - Sinusitis [Recovered/Resolved]

NARRATIVE: CASE EVENT DATE: 20140311
